FAERS Safety Report 25981393 (Version 2)
Quarter: 2025Q4

REPORT INFORMATION
  Report Type: Spontaneous
  Country: CN (occurrence: CN)
  Receive Date: 20251030
  Receipt Date: 20251107
  Transmission Date: 20260117
  Serious: Yes (Other)
  Sender: BRISTOL-MYERS SQUIBB COMPANY
  Company Number: CN-MLMSERVICE-20251020-PI682106-00255-1

PATIENT
  Age: 56 Year
  Sex: Male

DRUGS (4)
  1. PACLITAXEL [Suspect]
     Active Substance: PACLITAXEL
     Indication: Pancreatic carcinoma metastatic
     Dosage: 200 MG ON DAYS 1 AND 8
  2. GEMCITABINE [Suspect]
     Active Substance: GEMCITABINE
     Indication: Pancreatic carcinoma metastatic
     Dosage: 1.4 G ON DAYS 1 AND 8
  3. NIMOTUZUMAB [Suspect]
     Active Substance: NIMOTUZUMAB
     Indication: Pancreatic carcinoma metastatic
     Dates: start: 20240720
  4. CADONILIMAB [Suspect]
     Active Substance: CADONILIMAB
     Indication: Pancreatic carcinoma metastatic
     Dates: start: 20240720

REACTIONS (2)
  - Hypothyroidism [Recovered/Resolved]
  - Haematotoxicity [Recovered/Resolved]

NARRATIVE: CASE EVENT DATE: 20240901
